FAERS Safety Report 6662149-2 (Version None)
Quarter: 2010Q1

REPORT INFORMATION
  Report Type: 
  Country: None (occurrence: None)
  Receive Date: 20100329
  Receipt Date: 20100315
  Transmission Date: 20100710
  Serious: Yes (Other)
  Sender: FDA-Public Use
  Company Number: 232843J10USA

PATIENT
  Age: 35 Year
  Sex: Female

DRUGS (1)
  1. REBIF [Suspect]
     Indication: MULTIPLE SCLEROSIS
     Dosage: SUBCUTANEOUS,  8.8 MCG, 3 IN 1 WEEKS, SUBCUTANEOUS
     Route: 058
     Dates: start: 20100308

REACTIONS (3)
  - BLOOD DISORDER [None]
  - INFLUENZA LIKE ILLNESS [None]
  - INJECTION SITE REACTION [None]
